FAERS Safety Report 14688032 (Version 4)
Quarter: 2019Q1

REPORT INFORMATION
  Report Type: Spontaneous
  Country: US (occurrence: US)
  Receive Date: 20180328
  Receipt Date: 20190311
  Transmission Date: 20190417
  Serious: No
  Sender: FDA-Public Use
  Company Number: US-PFIZER INC-2017244589

PATIENT
  Age: 14 Year
  Sex: Male

DRUGS (3)
  1. GENOTROPIN [Suspect]
     Active Substance: SOMATROPIN
     Dosage: 2.4 MG, DAILY
     Dates: start: 20170323
  2. GENOTROPIN [Suspect]
     Active Substance: SOMATROPIN
     Indication: KYPHOSIS
     Dosage: 2.1 MG, DAILY
     Dates: start: 201703
  3. GENOTROPIN [Suspect]
     Active Substance: SOMATROPIN
     Indication: GROWTH HORMONE DEFICIENCY
     Dosage: 1.9 MG, DAILY
     Dates: start: 201703

REACTIONS (3)
  - Intentional dose omission [Unknown]
  - Product prescribing error [Unknown]
  - Nausea [Unknown]
